FAERS Safety Report 18437187 (Version 2)
Quarter: 2020Q4

REPORT INFORMATION
  Report Type: Report from Study
  Country: ZA (occurrence: ZA)
  Receive Date: 20201028
  Receipt Date: 20201111
  Transmission Date: 20210114
  Serious: Yes (Other)
  Sender: FDA-Public Use
  Company Number: PHHY2018ZA012220

PATIENT
  Age: 41 Year
  Sex: Female

DRUGS (3)
  1. TUVIGIN [Suspect]
     Active Substance: FINGOLIMOD HYDROCHLORIDE
     Dosage: 0.5 MG, QD
     Route: 048
     Dates: start: 20170524
  2. TUVIGIN [Suspect]
     Active Substance: FINGOLIMOD HYDROCHLORIDE
     Indication: MULTIPLE SCLEROSIS
     Dosage: 0.5 MG
     Route: 048
  3. TUVIGIN [Suspect]
     Active Substance: FINGOLIMOD HYDROCHLORIDE
     Indication: RELAPSING-REMITTING MULTIPLE SCLEROSIS
     Dosage: 0.5 MG, QD
     Route: 048
     Dates: start: 20180524

REACTIONS (21)
  - Hypoaesthesia [Unknown]
  - Pain [Unknown]
  - White blood cell count decreased [Unknown]
  - Blood pressure increased [Recovered/Resolved]
  - Headache [Unknown]
  - Urinary retention [Unknown]
  - Gait spastic [Unknown]
  - Heart rate abnormal [Recovered/Resolved]
  - Dizziness [Recovered/Resolved]
  - Muscle spasms [Unknown]
  - Anal incontinence [Unknown]
  - Malaise [Not Recovered/Not Resolved]
  - Fatigue [Recovered/Resolved]
  - Pain in extremity [Unknown]
  - Sinusitis [Unknown]
  - Multiple sclerosis relapse [Recovered/Resolved]
  - Paraesthesia [Unknown]
  - Stress [Unknown]
  - H1N1 influenza [Unknown]
  - Paresis [Unknown]
  - Sinus headache [Recovered/Resolved]

NARRATIVE: CASE EVENT DATE: 20180524
